FAERS Safety Report 22250112 (Version 1)
Quarter: 2023Q2

REPORT INFORMATION
  Report Type: Report from Study
  Country: DE (occurrence: DE)
  Receive Date: 20230425
  Receipt Date: 20230425
  Transmission Date: 20230721
  Serious: Yes (Hospitalization, Other)
  Sender: FDA-Public Use
  Company Number: DE-UCBSA-2023020764

PATIENT
  Age: 72 Year
  Sex: Female

DRUGS (3)
  1. CIMZIA [Suspect]
     Active Substance: CERTOLIZUMAB PEGOL
     Indication: Rheumatoid arthritis
     Dosage: 400 MILLIGRAM, UNK
     Route: 065
     Dates: start: 201703
  2. CIMZIA [Suspect]
     Active Substance: CERTOLIZUMAB PEGOL
     Dosage: 200 MILLIGRAM
     Dates: end: 202205
  3. ORENCIA [Suspect]
     Active Substance: ABATACEPT
     Indication: Product used for unknown indication
     Dosage: 125 MILLIGRAM, UNK
     Route: 065
     Dates: start: 202205

REACTIONS (9)
  - Cataract [Unknown]
  - Oedema peripheral [Unknown]
  - Escherichia urinary tract infection [Recovered/Resolved]
  - Rheumatoid arthritis-associated interstitial lung disease [Unknown]
  - Blepharitis [Unknown]
  - Rheumatoid lung [Unknown]
  - Conjunctivitis [Unknown]
  - Diastolic dysfunction [Unknown]
  - Optic nerve disorder [Unknown]

NARRATIVE: CASE EVENT DATE: 20220301
